FAERS Safety Report 4911525-4 (Version None)
Quarter: 2006Q1

REPORT INFORMATION
  Report Type: 
  Country: None (occurrence: None)
  Receive Date: 20060214
  Receipt Date: 20060206
  Transmission Date: 20060701
  Serious: Yes (Hospitalization, Other)
  Sender: FDA-Public Use
  Company Number: US-MERCK-0602USA01473

PATIENT
  Age: 53 Year
  Sex: Male
  Weight: 136 kg

DRUGS (7)
  1. VIOXX [Suspect]
     Indication: ARTHRITIS
     Route: 048
     Dates: end: 20040801
  2. COUMADIN [Concomitant]
     Route: 065
  3. GLIPIZIDE [Concomitant]
     Route: 065
  4. METFORMIN [Concomitant]
     Route: 065
  5. NORVASC [Concomitant]
     Route: 065
  6. LIPITOR [Concomitant]
     Route: 065
  7. METOPROLOL [Concomitant]
     Route: 065

REACTIONS (4)
  - CARDIAC DISORDER [None]
  - CARDIOVASCULAR DISORDER [None]
  - HEART RATE ABNORMAL [None]
  - MYOCARDIAL INFARCTION [None]
